FAERS Safety Report 5746204-7 (Version None)
Quarter: 2008Q2

REPORT INFORMATION
  Report Type: 
  Country: None (occurrence: None)
  Receive Date: 20080520
  Receipt Date: 20080506
  Transmission Date: 20081010
  Serious: Yes (Life-Threatening, Hospitalization)
  Sender: FDA-Public Use
  Company Number: 2006-01756

PATIENT
  Age: 61 Year
  Weight: 86 kg

DRUGS (15)
  1. VELCADE [Suspect]
     Indication: T-CELL LYMPHOMA
     Dosage: 3.00 MG,
     Dates: start: 20060623, end: 20060627
  2. VELCADE [Suspect]
     Indication: T-CELL LYMPHOMA
     Dosage: 3.00 MG,
     Dates: start: 20060713
  3. VELCADE [Suspect]
     Indication: T-CELL LYMPHOMA
     Dosage: 3.00 MG,
     Dates: start: 20060713
  4. PREDNISONE TAB [Suspect]
     Indication: T-CELL LYMPHOMA
     Dosage: 120.00 MG,
     Dates: start: 20060623, end: 20060627
  5. PREDNISONE TAB [Suspect]
     Indication: T-CELL LYMPHOMA
     Dosage: 120.00 MG,
     Dates: start: 20060713
  6. CYCLOSHOSPHAMIDE(CYCLOPHOSPHAMIDE) VIAL [Suspect]
     Indication: T-CELL LYMPHOMA
     Dosage: 2400.00 MG,
     Dates: start: 20060623, end: 20060623
  7. CYCLOSHOSPHAMIDE(CYCLOPHOSPHAMIDE) VIAL [Suspect]
     Indication: T-CELL LYMPHOMA
     Dosage: 2400.00 MG,
     Dates: start: 20060713
  8. DOXIL [Suspect]
     Indication: T-CELL LYMPHOMA
     Dosage: 150.00 MG,
     Dates: start: 20060623, end: 20060623
  9. DOXIL [Suspect]
     Indication: T-CELL LYMPHOMA
     Dosage: 150.00 MG,
     Dates: start: 20060713
  10. ELDISINE [Suspect]
     Indication: T-CELL LYMPHOMA
     Dosage: 4.00 MG,
     Dates: start: 20060623, end: 20060627
  11. ELDISINE [Suspect]
     Indication: T-CELL LYMPHOMA
     Dosage: 4.00 MG,
     Dates: start: 20060713
  12. BLEOMYCIN SULFATE [Suspect]
     Indication: T-CELL LYMPHOMA
     Dosage: 10.00 IU;
     Dates: start: 20060623, end: 20060627
  13. BLEOMYCIN SULFATE [Suspect]
     Indication: T-CELL LYMPHOMA
     Dosage: 10.00 IU;
     Dates: start: 20060713
  14. GRAMPCUTE 13-34(LENOGRASTIM) INJECTION, 150MG/M2 [Suspect]
     Indication: T-CELL LYMPHOMA
     Dosage: 33.6 UG,
     Dates: start: 20060628, end: 20060630
  15. GRAMPCUTE 13-34(LENOGRASTIM) INJECTION, 150MG/M2 [Suspect]
     Indication: T-CELL LYMPHOMA
     Dosage: 33.6 UG,
     Dates: start: 20060713

REACTIONS (2)
  - HYPONATRAEMIA [None]
  - INAPPROPRIATE ANTIDIURETIC HORMONE SECRETION [None]
